FAERS Safety Report 15740789 (Version 1)
Quarter: 2018Q4

REPORT INFORMATION
  Report Type: Spontaneous
  Country: GB (occurrence: GB)
  Receive Date: 20181219
  Receipt Date: 20181219
  Transmission Date: 20190205
  Serious: Yes (Death)
  Sender: FDA-Public Use
  Company Number: GB-TEVA-2018-GB-987767

PATIENT
  Sex: Female

DRUGS (3)
  1. XELODA [Suspect]
     Active Substance: CAPECITABINE
     Route: 065
  2. CISPLATIN. [Suspect]
     Active Substance: CISPLATIN
     Route: 065
  3. EPIRUBICIN [Suspect]
     Active Substance: EPIRUBICIN
     Route: 065

REACTIONS (1)
  - Renal failure [Fatal]
